FAERS Safety Report 6161499-6 (Version None)
Quarter: 2009Q2

REPORT INFORMATION
  Report Type: 
  Country: None (occurrence: None)
  Receive Date: 20090421
  Receipt Date: 20090417
  Transmission Date: 20091009
  Serious: Yes (Death, Other)
  Sender: FDA-Public Use
  Company Number: PHHY2009JP13364

PATIENT
  Sex: Male

DRUGS (9)
  1. CYCLOSPORINE [Suspect]
     Indication: HISTIOCYTOSIS HAEMATOPHAGIC
     Dosage: UNK
  2. VP-16 [Suspect]
     Indication: HISTIOCYTOSIS HAEMATOPHAGIC
     Dosage: UNK
  3. ADRENAL CORTICAL EXTRACT [Suspect]
     Indication: HISTIOCYTOSIS HAEMATOPHAGIC
  4. CHOP [Concomitant]
     Indication: LYMPHOMA
  5. METHYLPREDNISOLONE 4MG TAB [Concomitant]
     Dosage: 1 G
  6. MEROPENEM [Concomitant]
  7. MINOCYCLINE HCL [Concomitant]
  8. MICAFUNGIN [Concomitant]
  9. GANCICLOVIR [Concomitant]

REACTIONS (8)
  - BLOOD BETA-D-GLUCAN INCREASED [None]
  - BRONCHOPULMONARY ASPERGILLOSIS [None]
  - FUNGUS SEROLOGY TEST POSITIVE [None]
  - HYPOXIA [None]
  - LYMPHOMA [None]
  - MUCORMYCOSIS [None]
  - PULMONARY ALVEOLAR HAEMORRHAGE [None]
  - RESPIRATORY FAILURE [None]
